FAERS Safety Report 4555849-1 (Version None)
Quarter: 2005Q1

REPORT INFORMATION
  Report Type: 
  Country: None (occurrence: None)
  Receive Date: 20050111
  Receipt Date: 20041111
  Transmission Date: 20050727
  Serious: No
  Sender: FDA-Public Use
  Company Number: 2004S1000258

PATIENT
  Sex: Female

DRUGS (1)
  1. CUBICIN [Suspect]
     Dosage: 548 MG;Q24H;IV
     Route: 042
     Dates: start: 20040101

REACTIONS (1)
  - INJECTION SITE EXTRAVASATION [None]
